FAERS Safety Report 10371623 (Version 1)
Quarter: 2014Q3

REPORT INFORMATION
  Report Type: Report from Study
  Country: US (occurrence: US)
  Receive Date: 20140808
  Receipt Date: 20140808
  Transmission Date: 20150326
  Serious: Yes (Hospitalization)
  Sender: FDA-Public Use
  Company Number: US-GLAXOSMITHKLINE-A0997826A

PATIENT
  Age: 52 Year
  Sex: Female
  Weight: 111.5 kg

DRUGS (1)
  1. RAXIBACUMAB. [Suspect]
     Active Substance: RAXIBACUMAB
     Dosage: 40MGK CYCLIC
     Route: 042
     Dates: start: 20080319, end: 20080402

REACTIONS (1)
  - Cholecystitis [Recovered/Resolved]

NARRATIVE: CASE EVENT DATE: 20080412
